FAERS Safety Report 12499807 (Version 1)
Quarter: 2016Q2

REPORT INFORMATION
  Report Type: Report from Study
  Country: BR (occurrence: BR)
  Receive Date: 20160627
  Receipt Date: 20160627
  Transmission Date: 20160815
  Serious: Yes (Other)
  Sender: FDA-Public Use
  Company Number: BR-JNJFOC-20160316978

PATIENT
  Age: 67 Year
  Sex: Female

DRUGS (2)
  1. PANTOPRAZOLE [Concomitant]
     Active Substance: PANTOPRAZOLE SODIUM
     Route: 065
  2. SIMPONI [Suspect]
     Active Substance: GOLIMUMAB
     Indication: RHEUMATOID ARTHRITIS
     Route: 058
     Dates: start: 20130425

REACTIONS (6)
  - Spinal disorder [Unknown]
  - Lumbar vertebral fracture [Unknown]
  - Labyrinthitis [Unknown]
  - Osteitis [Unknown]
  - Gastritis [Unknown]
  - Influenza [Unknown]

NARRATIVE: CASE EVENT DATE: 201310
